FAERS Safety Report 7638766-X (Version None)
Quarter: 2011Q3

REPORT INFORMATION
  Report Type: 
  Country: None (occurrence: None)
  Receive Date: 20110727
  Receipt Date: 20110718
  Transmission Date: 20111222
  Serious: Yes (Life-Threatening, Hospitalization)
  Sender: FDA-Public Use
  Company Number: US-AMGEN-USASP2011036356

PATIENT
  Age: 84 Year
  Sex: Female

DRUGS (1)
  1. ENBREL [Suspect]
     Indication: RHEUMATOID ARTHRITIS
     Dosage: UNK
     Dates: start: 20040901, end: 20110328

REACTIONS (7)
  - SINUSITIS [None]
  - ACUTE RESPIRATORY FAILURE [None]
  - BRONCHITIS [None]
  - PAIN [None]
  - PYREXIA [None]
  - PNEUMONIA [None]
  - PRODUCTIVE COUGH [None]
